FAERS Safety Report 20386035 (Version 2)
Quarter: 2022Q1

REPORT INFORMATION
  Report Type: Spontaneous
  Country: US (occurrence: US)
  Receive Date: 20220127
  Receipt Date: 20220211
  Transmission Date: 20220423
  Serious: Yes (Hospitalization)
  Sender: FDA-Public Use
  Company Number: US-TEVA-2022-US-2001133

PATIENT
  Age: 29 Year
  Sex: Female

DRUGS (16)
  1. OLANZAPINE [Suspect]
     Active Substance: OLANZAPINE
     Indication: Hallucination
     Dosage: AT NIGHT
     Route: 065
  2. DEXAMETHASONE [Suspect]
     Active Substance: DEXAMETHASONE
     Indication: Spinal cord compression
     Dosage: 10 MILLIGRAM DAILY;
     Route: 042
  3. DEXAMETHASONE [Suspect]
     Active Substance: DEXAMETHASONE
     Indication: Neuralgia
     Dosage: 30 MILLIGRAM DAILY;
     Route: 042
  4. HYDROMORPHONE [Suspect]
     Active Substance: HYDROMORPHONE
     Indication: Neuralgia
     Dosage: PATIENT-CONTROLLED ANALGESIA (ROUTE: {BOLUS}
     Route: 050
  5. HYDROMORPHONE [Suspect]
     Active Substance: HYDROMORPHONE
     Dosage: PRN
     Route: 040
  6. HYDROMORPHONE [Suspect]
     Active Substance: HYDROMORPHONE
     Dosage: 9.8 MILLIGRAM DAILY; CONSTANT INFUSION; INTRATHECAL DRUG DELIVERY SYSTEM IMPLANTED
     Route: 037
  7. BUPIVACAINE [Suspect]
     Active Substance: BUPIVACAINE
     Indication: Neuralgia
     Dosage: 6.5 MILLIGRAM DAILY; CONSTANT INFUSION; INTRATHECAL DRUG DELIVERY SYSTEM IMPLANTED
     Route: 037
  8. LIDOCAINE [Suspect]
     Active Substance: LIDOCAINE
     Indication: Neuralgia
     Dosage: LOADING DOSE
     Route: 040
  9. LIDOCAINE [Suspect]
     Active Substance: LIDOCAINE
     Dosage: CONTINUOUS INFUSION
     Route: 041
  10. LIDOCAINE [Suspect]
     Active Substance: LIDOCAINE
     Route: 041
  11. KETAMINE [Concomitant]
     Active Substance: KETAMINE
     Indication: Neuralgia
     Route: 050
  12. METHADONE [Concomitant]
     Active Substance: METHADONE HYDROCHLORIDE
     Indication: Neuralgia
     Dosage: 20/20/30 MG; THREE TIMES A DAY
     Route: 048
  13. ACETAMINOPHEN [Concomitant]
     Active Substance: ACETAMINOPHEN
     Indication: Neuralgia
     Route: 048
  14. DULOXETINE [Concomitant]
     Active Substance: DULOXETINE
     Indication: Neuralgia
     Dosage: 60 MILLIGRAM DAILY;
     Route: 048
  15. METHOCARBAMOL [Concomitant]
     Active Substance: METHOCARBAMOL
     Indication: Neuralgia
     Dosage: 3000 MILLIGRAM DAILY;
     Route: 048
  16. FENTANYL [Concomitant]
     Active Substance: FENTANYL
     Indication: Neuralgia
     Dosage: PATIENT-CONTROLLED ANALGESIA UP TO A 150 UG IV PRN WITH A 25 UG/HOUR BASAL RATE
     Route: 040

REACTIONS (5)
  - Hoigne^s syndrome [Recovering/Resolving]
  - Delirium [Recovering/Resolving]
  - Somnolence [Unknown]
  - Drug ineffective [Unknown]
  - Therapy non-responder [Unknown]
